FAERS Safety Report 6427884-X (Version None)
Quarter: 2009Q4

REPORT INFORMATION
  Report Type: 
  Country: None (occurrence: None)
  Receive Date: 20091102
  Receipt Date: 20091021
  Transmission Date: 20100525
  Serious: Yes (Hospitalization)
  Sender: FDA-Public Use
  Company Number: 2009AL006797

PATIENT
  Age: 82 Year
  Sex: Female

DRUGS (8)
  1. DIAZEPAM [Suspect]
     Dosage: 2 MG; BID; PO
     Route: 048
     Dates: start: 20090827, end: 20090902
  2. BENZODIAZEPINE [Concomitant]
  3. ABILIFY [Concomitant]
  4. ACETYLSALICYLIC ACID [Concomitant]
  5. FENOFIBRATE [Concomitant]
  6. OMEPRAZOLE [Concomitant]
  7. COSOPT [Concomitant]
  8. BIMATOPROST [Concomitant]

REACTIONS (10)
  - AGITATION [None]
  - BLUNTED AFFECT [None]
  - CONFUSIONAL STATE [None]
  - FAECAL INCONTINENCE [None]
  - FALL [None]
  - FATIGUE [None]
  - INSOMNIA [None]
  - PSYCHOMOTOR HYPERACTIVITY [None]
  - SEDATION [None]
  - URINARY INCONTINENCE [None]
